FAERS Safety Report 11876776 (Version 1)
Quarter: 2015Q4

REPORT INFORMATION
  Report Type: Spontaneous
  Country: DE (occurrence: DE)
  Receive Date: 20151229
  Receipt Date: 20151229
  Transmission Date: 20160305
  Serious: Yes (Hospitalization)
  Sender: FDA-Public Use
  Company Number: DE-TEVA-621175GER

PATIENT
  Age: 64 Year
  Sex: Female
  Weight: 72.1 kg

DRUGS (4)
  1. DOXORUBICIN [Suspect]
     Active Substance: DOXORUBICIN
     Indication: DIFFUSE LARGE B-CELL LYMPHOMA
     Dosage: 90 MILLIGRAM EVERY 14 DAY
     Route: 042
     Dates: start: 20150903, end: 20151112
  2. CYCLOPHOSPHAMID [Suspect]
     Active Substance: CYCLOPHOSPHAMIDE
     Indication: DIFFUSE LARGE B-CELL LYMPHOMA
     Dosage: 1360 MILLIGRAM EVERY 14 DAY
     Route: 042
     Dates: start: 20150903, end: 20151112
  3. RITUXIMAB [Suspect]
     Active Substance: RITUXIMAB
     Indication: DIFFUSE LARGE B-CELL LYMPHOMA
     Dosage: 680 MILLIGRAM EVERY 14 DAY
     Route: 042
     Dates: start: 20150903, end: 20151112
  4. VINCRISTIN [Suspect]
     Active Substance: VINCRISTINE
     Indication: DIFFUSE LARGE B-CELL LYMPHOMA
     Dosage: 2 MILLIGRAM EVERY 14 DAY
     Route: 042
     Dates: start: 20150903, end: 20151112

REACTIONS (1)
  - Pneumocystis jirovecii pneumonia [Recovered/Resolved]

NARRATIVE: CASE EVENT DATE: 20151203
